FAERS Safety Report 20775512 (Version 1)
Quarter: 2022Q2

REPORT INFORMATION
  Report Type: Spontaneous
  Country: US (occurrence: None)
  Receive Date: 20220502
  Receipt Date: 20220502
  Transmission Date: 20220721
  Serious: Yes (Hospitalization)
  Sender: FDA-Public Use
  Company Number: None

PATIENT
  Age: 57 Year
  Sex: Female

DRUGS (1)
  1. CAPECITABINE [Suspect]
     Active Substance: CAPECITABINE
     Dosage: FREQUENCY : TWICE A DAY;?
     Route: 048
     Dates: start: 202202

REACTIONS (6)
  - Therapy interrupted [None]
  - Diarrhoea [None]
  - Dehydration [None]
  - Weight decreased [None]
  - Gingival pain [None]
  - Gingival bleeding [None]

NARRATIVE: CASE EVENT DATE: 20220502
